FAERS Safety Report 20540937 (Version 2)
Quarter: 2022Q2

REPORT INFORMATION
  Report Type: Spontaneous
  Country: GB (occurrence: GB)
  Receive Date: 20220302
  Receipt Date: 20220616
  Transmission Date: 20220720
  Serious: Yes (Other)
  Sender: FDA-Public Use
  Company Number: None

PATIENT
  Age: 73 Year
  Sex: Female
  Weight: 77.11 kg

DRUGS (7)
  1. RIVAROXABAN [Suspect]
     Active Substance: RIVAROXABAN
     Indication: Deep vein thrombosis
     Dosage: 15 MG, BID
     Route: 048
     Dates: start: 20210122, end: 20210212
  2. RIVAROXABAN [Suspect]
     Active Substance: RIVAROXABAN
     Indication: Ill-defined disorder
     Route: 048
  3. RIVAROXABAN [Suspect]
     Active Substance: RIVAROXABAN
     Dosage: 20 MG, QD
     Route: 048
     Dates: start: 20210223, end: 20210416
  4. RIVAROXABAN [Suspect]
     Active Substance: RIVAROXABAN
     Route: 048
  5. BISOPROLOL FUMARATE [Concomitant]
     Active Substance: BISOPROLOL FUMARATE
     Indication: Ill-defined disorder
  6. CLOPIDOGREL BESILATE [Concomitant]
     Active Substance: CLOPIDOGREL BESILATE
     Indication: Ill-defined disorder
  7. LEVOTHYROXINE SODIUM [Concomitant]
     Active Substance: LEVOTHYROXINE SODIUM
     Indication: Ill-defined disorder

REACTIONS (3)
  - Haematuria [Recovered/Resolved]
  - Gingival bleeding [Recovered/Resolved]
  - Medication error [Unknown]

NARRATIVE: CASE EVENT DATE: 20210208
